FAERS Safety Report 4617184-2 (Version None)
Quarter: 2005Q1

REPORT INFORMATION
  Report Type: 
  Country: None (occurrence: None)
  Receive Date: 20050323
  Receipt Date: 20050318
  Transmission Date: 20050727
  Serious: Yes (Other)
  Sender: FDA-Public Use
  Company Number: FR-GLAXOSMITHKLINE-B0375533A

PATIENT
  Age: 77 Year
  Sex: Female

DRUGS (3)
  1. AUGMENTIN '125' [Suspect]
     Indication: ERYSIPELAS
     Route: 042
     Dates: start: 20001201
  2. AUGMENTIN '125' [Suspect]
     Indication: ERYSIPELAS
     Dosage: 1G TWICE PER DAY
     Route: 048
     Dates: start: 20001201
  3. FORTZAAR [Concomitant]
     Indication: HYPERTENSION

REACTIONS (1)
  - REFRACTORY ANAEMIA [None]
